FAERS Safety Report 6175604-9 (Version None)
Quarter: 2009Q2

REPORT INFORMATION
  Report Type: 
  Country: None (occurrence: None)
  Receive Date: 20090501
  Receipt Date: 20090423
  Transmission Date: 20091009
  Serious: Yes (Other)
  Sender: FDA-Public Use
  Company Number: BR-BAYER-200915509LA

PATIENT
  Age: 14 Year
  Sex: Female
  Weight: 57 kg

DRUGS (1)
  1. YAZ [Suspect]
     Indication: MUSCLE SPASMS
     Route: 048
     Dates: start: 20080801

REACTIONS (6)
  - BREAST ENLARGEMENT [None]
  - FATIGUE [None]
  - INCREASED APPETITE [None]
  - SKIN STRIAE [None]
  - SOMNOLENCE [None]
  - WEIGHT INCREASED [None]
